FAERS Safety Report 14263581 (Version 1)
Quarter: 2017Q4

REPORT INFORMATION
  Report Type: Spontaneous
  Country: JP (occurrence: JP)
  Receive Date: 20171208
  Receipt Date: 20171208
  Transmission Date: 20180321
  Serious: Yes (Other)
  Sender: FDA-Public Use
  Company Number: JP-JNJFOC-20171202423

PATIENT
  Age: 8 Year
  Sex: Male

DRUGS (1)
  1. TRABECTEDIN [Suspect]
     Active Substance: TRABECTEDIN
     Indication: MALIGNANT MELANOMA
     Route: 042

REACTIONS (4)
  - Renal failure [Unknown]
  - Product use issue [Unknown]
  - Off label use [Unknown]
  - Sepsis [Unknown]
